FAERS Safety Report 15916134 (Version 1)
Quarter: 2019Q1

REPORT INFORMATION
  Report Type: Spontaneous
  Country: US (occurrence: US)
  Receive Date: 20190114
  Receipt Date: 20190114
  Transmission Date: 20190417
  Serious: No
  Sender: FDA-Public Use
  Company Number: None

PATIENT
  Age: 53 Year
  Sex: Male

DRUGS (4)
  1. ABIRATERONE TAB 250MG TAB [Suspect]
     Active Substance: ABIRATERONE
     Indication: PROSTATE CANCER
     Route: 048
     Dates: start: 20181130
  2. PREDNISONE. [Concomitant]
     Active Substance: PREDNISONE
  3. LUPRON DEPOT [Concomitant]
     Active Substance: LEUPROLIDE ACETATE
  4. VITAMIN D3 [Concomitant]
     Active Substance: CHOLECALCIFEROL

REACTIONS (2)
  - Nasopharyngitis [None]
  - Sinus congestion [None]

NARRATIVE: CASE EVENT DATE: 20190113
